FAERS Safety Report 9032652 (Version 5)
Quarter: 2013Q3

REPORT INFORMATION
  Report Type: Spontaneous
  Country: US (occurrence: US)
  Receive Date: 20130125
  Receipt Date: 20130801
  Transmission Date: 20140515
  Serious: Yes (Hospitalization, Other)
  Sender: FDA-Public Use
  Company Number: US-009507513-1301USA010580

PATIENT
  Sex: Female

DRUGS (4)
  1. FOSAMAX [Suspect]
     Indication: OSTEOPENIA
     Dosage: 70 MG, QW
     Route: 048
     Dates: start: 199801, end: 20101107
  2. FOSAMAX [Suspect]
     Indication: OSTEOPOROSIS
     Dosage: UNK
     Route: 048
     Dates: start: 1998, end: 2010
  3. ADVAIR [Concomitant]
     Indication: ASTHMA
     Dosage: UNK
     Dates: start: 20080905, end: 20090101
  4. PREMPRO [Concomitant]
     Indication: MENOPAUSE
     Dosage: UNK
     Dates: start: 20040406, end: 20100507

REACTIONS (40)
  - Femur fracture [Unknown]
  - Intramedullary rod insertion [Unknown]
  - Hip surgery [Unknown]
  - Biopsy bone [Unknown]
  - Open reduction of fracture [Unknown]
  - Bone graft [Unknown]
  - Femur fracture [Unknown]
  - Intramedullary rod insertion [Unknown]
  - Device failure [Unknown]
  - Anaemia postoperative [Unknown]
  - Postoperative fever [Unknown]
  - Caesarean section [Unknown]
  - Medical device removal [Unknown]
  - Biopsy bone [Unknown]
  - Internal fixation of fracture [Unknown]
  - Bone graft [Unknown]
  - Femur fracture [Unknown]
  - Femur fracture [Unknown]
  - Depression [Unknown]
  - Anxiety [Unknown]
  - Asthenia [Unknown]
  - Vitamin D deficiency [Unknown]
  - Ventricular extrasystoles [Unknown]
  - Migraine [Unknown]
  - Arthritis [Unknown]
  - Impaired healing [Unknown]
  - Fall [Unknown]
  - Blood cholesterol increased [Unknown]
  - Hypertension [Unknown]
  - Retinal detachment [Unknown]
  - Uterine dilation and curettage [Unknown]
  - Fracture delayed union [Unknown]
  - Weight decreased [Unknown]
  - Allergy to vaccine [Unknown]
  - Oedema [Unknown]
  - Sleep disorder [Unknown]
  - Adverse event [Unknown]
  - Hyperlipidaemia [Unknown]
  - Diarrhoea [Unknown]
  - Constipation [Unknown]
